FAERS Safety Report 13930838 (Version 1)
Quarter: 2017Q3

REPORT INFORMATION
  Report Type: Report from Study
  Country: US (occurrence: US)
  Receive Date: 20170901
  Receipt Date: 20170901
  Transmission Date: 20171127
  Serious: Yes (Other)
  Sender: FDA-Public Use
  Company Number: US-AMGEN-USASP2017131177

PATIENT
  Age: 57 Year
  Sex: Female

DRUGS (1)
  1. ENBREL [Suspect]
     Active Substance: ETANERCEPT
     Indication: RHEUMATOID ARTHRITIS
     Dosage: 50 MG, QWK
     Route: 065
     Dates: start: 20170828

REACTIONS (7)
  - Injection site pain [Unknown]
  - Wrong technique in product usage process [Unknown]
  - Injection site nodule [Recovering/Resolving]
  - Rheumatoid arthritis [Not Recovered/Not Resolved]
  - Injection site hypersensitivity [Unknown]
  - Cough [Unknown]
  - Injection site discolouration [Unknown]

NARRATIVE: CASE EVENT DATE: 20170828
